FAERS Safety Report 18194066 (Version 1)
Quarter: 2020Q3

REPORT INFORMATION
  Report Type: Spontaneous
  Country: CN (occurrence: CN)
  Receive Date: 20200825
  Receipt Date: 20200825
  Transmission Date: 20201103
  Serious: Yes (Other)
  Sender: FDA-Public Use
  Company Number: CN-BAYER-2020-174083

PATIENT
  Age: 44 Year
  Sex: Male

DRUGS (5)
  1. STIVARGA [Suspect]
     Active Substance: REGORAFENIB
     Indication: HEPATIC CANCER
     Dosage: UNK
     Dates: start: 20191219
  2. ENTECAVIR. [Concomitant]
     Active Substance: ENTECAVIR
     Indication: ANTIVIRAL TREATMENT
     Dosage: UNK
     Dates: start: 2017
  3. TENOFOVIR [Concomitant]
     Active Substance: TENOFOVIR
     Indication: ANTIVIRAL TREATMENT
     Dosage: UNK
     Dates: end: 20191219
  4. STIVARGA [Suspect]
     Active Substance: REGORAFENIB
     Indication: METASTASES TO LUNG
  5. NEXAVAR [Suspect]
     Active Substance: SORAFENIB
     Indication: HEPATIC CANCER
     Dosage: UNK
     Dates: start: 20190418, end: 20191219

REACTIONS (10)
  - Hepatocellular carcinoma [None]
  - Cholecystitis [None]
  - Abdominal mass [None]
  - Bronchiolitis [None]
  - Bone scan abnormal [None]
  - Pulmonary fibrosis [None]
  - Pulmonary mass [Recovering/Resolving]
  - Metastases to lung [Recovering/Resolving]
  - Gallbladder disorder [None]
  - Renal cyst [None]

NARRATIVE: CASE EVENT DATE: 20190905
